FAERS Safety Report 9190104 (Version 2)
Quarter: 2013Q2

REPORT INFORMATION
  Report Type: Spontaneous
  Country: US (occurrence: None)
  Receive Date: 20120703
  Receipt Date: 20121031
  Transmission Date: 20140414
  Serious: No
  Sender: FDA-Public Use
  Company Number: PHEH2012US010004

PATIENT
  Age: 44 Year
  Sex: Female
  Weight: 62.1 kg

DRUGS (28)
  1. GILENYA [Suspect]
     Indication: MULTIPLE SCLEROSIS
     Route: 048
     Dates: start: 20120510
  2. PROVIGIL (MODAFINIL) [Concomitant]
  3. ACETYLCYSTEINE (ACETYLCYSTEINE) [Concomitant]
  4. VITAMIN B COMPLEX (CALCIUM PANTOTHENATE, NICOTINAMIDE, PYRIDOXINE HYDROCHLORIDE, RIBOFLAVIN, THIAMINE HYDROCHLORIDE) [Concomitant]
  5. VITAMIN B12 (CYANOCOBALAMIN) [Concomitant]
  6. SINGULAR (MONTELUKAST) [Concomitant]
  7. AZITHROMYCIN (AZITHROMYCIN) [Concomitant]
  8. ACETYLCARNITINE (ACETYLCARNITINE) [Concomitant]
  9. ALPHA-LIPON (THIOCTIC ACID) [Concomitant]
  10. IRON W/VITAMINS NOS (IRON, VITAMINS NOS) [Concomitant]
  11. VITAMIN D3 (COLECALCIFEROL) [Concomitant]
  12. GINKGO BILOBA EXTRACT (GINKGO BILOBA EXTRACT) [Concomitant]
  13. PROBIOTICS (NO INGREDIENTS/SUBSTANCES) [Concomitant]
  14. GLUCOSAMINE /CHONDROITIN (CHONDROITIN, GLUCOSAMINE, METHYLSULFONYLMETHANE) [Concomitant]
  15. MYCOBUTIN (RIFABUTIN) [Concomitant]
  16. DESMOPRESSIN (DESMOPRESSIN) [Concomitant]
  17. TINIDAZOLE (TINIDAZOLE) [Concomitant]
  18. NALTREXONE (NALTREXONE) [Concomitant]
  19. CHARCOAL, ACTIVATED [Concomitant]
  20. GLUCOSE (GLUCOSE) [Concomitant]
  21. CHLORELLA VULGARIS (CHLORELLA VULGARIS) [Concomitant]
  22. CURCUMIOIDS [Concomitant]
  23. VITAMIN B-COMPLEX WITH MINERALS (NO INGREDIENTS/SUBSTANCES) [Concomitant]
  24. VITAMIN B1 (THIAMINE HYDROCHLORIDE) [Concomitant]
  25. VITAMIN B2 (RIBOFLAVIN) [Concomitant]
  26. NIACIN (NICOTINIC ACID) [Concomitant]
  27. VITAMIN B6 (PYRIDOXINE HYDROCHLORIDE) [Concomitant]
  28. PANTOTHENIC ACID (PANTOTHENIC ACID) [Concomitant]

REACTIONS (2)
  - Micturition urgency [None]
  - Fatigue [None]
